FAERS Safety Report 7733619 (Version 5)
Quarter: 2014Q4

REPORT INFORMATION
  Report Type: Report from Study
  Country: JP (occurrence: JP)
  Receive Date: 20101223
  Receipt Date: 20141017
  Transmission Date: 20150529
  Serious: Yes (Hospitalization)
  Sender: FDA-Public Use
  Company Number: JP-JNJFOC-20101206078

PATIENT
  Age: 41 Year
  Sex: Male
  Weight: 55 kg

DRUGS (11)
  1. REMICADE [Suspect]
     Active Substance: INFLIXIMAB
     Indication: PSORIATIC ARTHROPATHY
     Route: 042
     Dates: start: 20100607, end: 20100607
  2. LOXONIN [Concomitant]
     Active Substance: LOXOPROFEN SODIUM
     Indication: PROPHYLAXIS
     Route: 048
     Dates: start: 20100426, end: 20100726
  3. REMICADE [Suspect]
     Active Substance: INFLIXIMAB
     Indication: PSORIATIC ARTHROPATHY
     Route: 042
     Dates: start: 20100426, end: 20100426
  4. DOVONEX [Concomitant]
     Active Substance: CALCIPOTRIENE
     Indication: PSORIATIC ARTHROPATHY
  5. REMICADE [Suspect]
     Active Substance: INFLIXIMAB
     Indication: PSORIATIC ARTHROPATHY
     Route: 042
     Dates: start: 20100726, end: 20100726
  6. ANTEBATE [Concomitant]
     Active Substance: BETAMETHASONE DIPROPIONATE
     Indication: PSORIATIC ARTHROPATHY
     Dosage: START DATE BEFORE INFLIXIMAB THERAPY
  7. OXAROL [Concomitant]
     Active Substance: MAXACALCITOL
     Indication: PSORIATIC ARTHROPATHY
  8. TALION [Concomitant]
     Active Substance: BEPOTASTINE
     Indication: PROPHYLAXIS
     Route: 048
     Dates: start: 20100426, end: 20100726
  9. REMICADE [Suspect]
     Active Substance: INFLIXIMAB
     Indication: PSORIATIC ARTHROPATHY
     Route: 042
     Dates: start: 20100510, end: 20100510
  10. CALONAL [Concomitant]
     Active Substance: ACETAMINOPHEN
     Indication: PROPHYLAXIS
     Route: 048
     Dates: start: 20100426, end: 20100726
  11. PSORALEN PLUS ULTRAVIOLET LIGHT THERAPY [Concomitant]
     Active Substance: PSORALEN
     Route: 065

REACTIONS (8)
  - Psoriasis [Recovering/Resolving]
  - Drug effect decreased [Unknown]
  - Palpitations [Recovered/Resolved]
  - Flushing [Recovered/Resolved]
  - Conjunctival hyperaemia [Recovered/Resolved]
  - Arthralgia [Recovering/Resolving]
  - Peripheral sensorimotor neuropathy [Recovering/Resolving]
  - Infusion related reaction [Recovered/Resolved]

NARRATIVE: CASE EVENT DATE: 20100726
